FAERS Safety Report 20063276 (Version 1)
Quarter: 2021Q4

REPORT INFORMATION
  Report Type: Report from Study
  Country: US (occurrence: US)
  Receive Date: 20211112
  Receipt Date: 20211112
  Transmission Date: 20220304
  Serious: Yes (Other)
  Sender: FDA-Public Use
  Company Number: US-PFIZER INC-202101545009

PATIENT

DRUGS (5)
  1. CARBOPLATIN [Suspect]
     Active Substance: CARBOPLATIN
     Indication: Non-small cell lung cancer
     Dosage: .0 MG/ML*MIN (CONCENTRATION-TIME CURVE (AUC)EVERY 3 WEEKS FOR SIX CYCLES
  2. BEVACIZUMAB [Suspect]
     Active Substance: BEVACIZUMAB
     Indication: Non-small cell lung cancer
     Dosage: 15 MG/KG,(OVER 90 MINUTES, ON DAY 1)EVERY 3 WEEKS FOR SIX CYCLES
  3. PEMETREXED [Suspect]
     Active Substance: PEMETREXED
     Indication: Non-small cell lung cancer
     Dosage: 500 MG/M2, CYCLIC,OVER 10 MINUTES, EVERY 3 WEEKS FOR SIX CYCLES
  4. DEXAMETHASONE [Concomitant]
     Active Substance: DEXAMETHASONE
     Indication: Rash
     Dosage: 4 MG, TWICE DAILY DAY BEFORE, DAY OF, AND DAY AFTER EACH PEMETREXED DOSE
  5. FOLIC ACID [Concomitant]
     Active Substance: FOLIC ACID
     Dosage: 1000 UG,DAILY (AT LEAST 5 DAYS BEFORE THE FIRST DOSE OF CHEMOTHERAPY)

REACTIONS (2)
  - Diverticulitis [Unknown]
  - Intestinal perforation [Unknown]
